FAERS Safety Report 6956077-2 (Version None)
Quarter: 2010Q3

REPORT INFORMATION
  Report Type: 
  Country: None (occurrence: None)
  Receive Date: 20100830
  Receipt Date: 20091013
  Transmission Date: 20110219
  Serious: No
  Sender: FDA-Public Use
  Company Number: US-AMGEN-KDL369048

PATIENT
  Sex: Female

DRUGS (16)
  1. NEUPOGEN [Suspect]
     Indication: PRODUCT USED FOR UNKNOWN INDICATION
  2. EFFEXOR [Concomitant]
  3. XANAX [Concomitant]
  4. VICOPROFEN (KNOLL LABS) [Concomitant]
  5. OXYCONTIN [Concomitant]
  6. TRAZODONE HCL [Concomitant]
  7. FLEXERIL [Concomitant]
  8. RIBAVIRIN [Concomitant]
  9. HUMIRA [Concomitant]
  10. PRENATAL VITAMINS [Concomitant]
  11. PREVACID [Concomitant]
  12. ZANTAC [Concomitant]
  13. TIGAN [Concomitant]
  14. NEURONTIN [Concomitant]
  15. RIBAVIRIN [Concomitant]
  16. PEG-INTRON [Concomitant]

REACTIONS (1)
  - INJECTION SITE HAEMATOMA [None]
